FAERS Safety Report 13126544 (Version 1)
Quarter: 2017Q1

REPORT INFORMATION
  Report Type: Spontaneous
  Country: US (occurrence: US)
  Receive Date: 20170118
  Receipt Date: 20170118
  Transmission Date: 20170428
  Serious: No
  Sender: FDA-Public Use
  Company Number: US-ROCHE-1695890

PATIENT
  Sex: Male

DRUGS (4)
  1. RITUXAN [Suspect]
     Active Substance: RITUXIMAB
     Indication: MICROSCOPIC POLYANGIITIS
  2. RITUXAN [Suspect]
     Active Substance: RITUXIMAB
     Indication: GRANULOMA
     Dosage: BSA DOSING BASED ON HEIGHT AND WEIGHT
     Route: 042
     Dates: start: 20160112
  3. CYTOXAN [Suspect]
     Active Substance: CYCLOPHOSPHAMIDE
     Indication: PRODUCT USED FOR UNKNOWN INDICATION
     Route: 065
     Dates: start: 20160107
  4. RITUXAN [Suspect]
     Active Substance: RITUXIMAB
     Indication: VASCULITIS

REACTIONS (1)
  - Stomatitis [Not Recovered/Not Resolved]

NARRATIVE: CASE EVENT DATE: 20160114
